FAERS Safety Report 7108530-9 (Version None)
Quarter: 2010Q4

REPORT INFORMATION
  Report Type: 
  Country: None (occurrence: None)
  Receive Date: 20101117
  Receipt Date: 20100928
  Transmission Date: 20110411
  Serious: No
  Sender: FDA-Public Use
  Company Number: A0876580A

PATIENT
  Age: 72 Year
  Sex: Male
  Weight: 72.3 kg

DRUGS (2)
  1. VOTRIENT [Suspect]
     Indication: RENAL CANCER
     Dosage: 800MG PER DAY
     Route: 048
     Dates: start: 20100728
  2. TORISEL [Suspect]
     Indication: RENAL CANCER
     Route: 065
     Dates: start: 20100217

REACTIONS (8)
  - DECREASED APPETITE [None]
  - DIARRHOEA [None]
  - DYSGEUSIA [None]
  - FATIGUE [None]
  - HAIR COLOUR CHANGES [None]
  - NAUSEA [None]
  - PLATELET COUNT DECREASED [None]
  - WEIGHT DECREASED [None]
